FAERS Safety Report 11863213 (Version 1)
Quarter: 2015Q4

REPORT INFORMATION
  Report Type: Spontaneous
  Country: US (occurrence: US)
  Receive Date: 20151223
  Receipt Date: 20151223
  Transmission Date: 20160305
  Serious: No
  Sender: FDA-Public Use
  Company Number: US-VERTEX PHARMACEUTICALS-2015-005910

PATIENT
  Age: 37 Year
  Sex: Male

DRUGS (3)
  1. CAYSTON [Concomitant]
     Active Substance: AZTREONAM
  2. ORKAMBI [Suspect]
     Active Substance: IVACAFTOR\LUMACAFTOR
     Indication: CYSTIC FIBROSIS
     Dosage: 2 DF (400MG/250MG), BID
     Route: 048
     Dates: start: 20151015
  3. PULMOZYME [Concomitant]
     Active Substance: DORNASE ALFA
     Route: 055

REACTIONS (1)
  - Pain [Unknown]

NARRATIVE: CASE EVENT DATE: 201512
